FAERS Safety Report 7617742-7 (Version None)
Quarter: 2011Q3

REPORT INFORMATION
  Report Type: 
  Country: None (occurrence: None)
  Receive Date: 20110718
  Receipt Date: 20110708
  Transmission Date: 20111222
  Serious: Yes (Hospitalization, Other)
  Sender: FDA-Public Use
  Company Number: JP-JNJFOC-20110605481

PATIENT
  Sex: Female

DRUGS (12)
  1. TOPIRAMATE [Suspect]
     Indication: EPILEPSY
     Route: 048
     Dates: end: 20110312
  2. BETA BLOCKING AGENTS [Concomitant]
     Indication: TACHYCARDIA
     Route: 048
     Dates: end: 20110201
  3. TOPIRAMATE [Suspect]
     Route: 048
     Dates: start: 20110313, end: 20110322
  4. TOPIRAMATE [Suspect]
     Route: 048
     Dates: end: 20110312
  5. TOPIRAMATE [Suspect]
     Route: 048
     Dates: start: 20100701
  6. TOPIRAMATE [Suspect]
     Route: 048
     Dates: start: 20110313, end: 20110322
  7. VALPROATE SODIUM [Suspect]
     Indication: EPILEPSY
     Route: 048
     Dates: start: 20070701
  8. MYSTAN [Suspect]
     Indication: EPILEPSY
     Route: 048
     Dates: start: 20110225
  9. TOPIRAMATE [Suspect]
     Indication: CONVULSION
     Route: 048
     Dates: start: 20100701
  10. VALPROATE SODIUM [Suspect]
     Route: 048
     Dates: start: 20071117
  11. TOPIRAMATE [Suspect]
     Route: 048
     Dates: start: 20090214, end: 20100701
  12. TOPIRAMATE [Suspect]
     Route: 048
     Dates: start: 20090214, end: 20100701

REACTIONS (3)
  - ORTHOSTATIC HYPOTENSION [None]
  - DRUG INEFFECTIVE [None]
  - THYROIDITIS SUBACUTE [None]
